FAERS Safety Report 5603981-3 (Version None)
Quarter: 2008Q2

REPORT INFORMATION
  Report Type: 
  Country: None (occurrence: None)
  Receive Date: 20080123
  Receipt Date: 20080114
  Transmission Date: 20081010
  Serious: Yes (Death)
  Sender: FDA-Public Use
  Company Number: B0503066A

PATIENT
  Age: 15 Year
  Sex: Female

DRUGS (4)
  1. BUPROPION HYDROCHLORIDE [Suspect]
     Dosage: ORAL
     Route: 048
  2. CLONIDINE [Suspect]
     Dosage: ORAL
     Route: 048
  3. FLUOXETINE [Suspect]
     Dosage: ORAL
     Route: 048
  4. SSRI (FORMULATION UNKNOWN) (SSRI) [Suspect]
     Dosage: ORAL
     Route: 048

REACTIONS (1)
  - COMPLETED SUICIDE [None]
